FAERS Safety Report 20939762 (Version 1)
Quarter: 2022Q2

REPORT INFORMATION
  Report Type: Spontaneous
  Country: CN (occurrence: CN)
  Receive Date: 20220609
  Receipt Date: 20220609
  Transmission Date: 20220720
  Serious: Yes (Other)
  Sender: FDA-Public Use
  Company Number: CN-009507513-2206CHN002090

PATIENT
  Age: 71 Year
  Sex: Male
  Weight: 50 kg

DRUGS (2)
  1. CILASTATIN SODIUM\IMIPENEM [Suspect]
     Active Substance: CILASTATIN SODIUM\IMIPENEM
     Indication: Anti-infective therapy
     Dosage: 0.5G, EVERY 8 HOURS (Q8H)
     Route: 041
     Dates: start: 20220518, end: 20220524
  2. SODIUM CHLORIDE [Concomitant]
     Active Substance: SODIUM CHLORIDE
     Indication: Anti-infective therapy
     Dosage: 100 ML, EVERY 8 HOURS (Q8H)
     Route: 041
     Dates: start: 20220518, end: 20220524

REACTIONS (5)
  - Delirium [Recovered/Resolved]
  - Disorganised speech [Recovered/Resolved]
  - Halo vision [Recovered/Resolved]
  - Fumbling [Recovered/Resolved]
  - Speech disorder [Recovered/Resolved]

NARRATIVE: CASE EVENT DATE: 20220523
